FAERS Safety Report 8252043-8 (Version None)
Quarter: 2012Q2

REPORT INFORMATION
  Report Type: 
  Country: None (occurrence: None)
  Receive Date: 20120402
  Receipt Date: 20110621
  Transmission Date: 20120825
  Serious: No
  Sender: FDA-Public Use
  Company Number: US-ABBOTT-11P-163-0734302-00

PATIENT
  Sex: Male

DRUGS (16)
  1. MORPHINE [Concomitant]
     Indication: DISABILITY
     Route: 030
  2. KLONOPIN [Concomitant]
     Indication: PRODUCT USED FOR UNKNOWN INDICATION
  3. AVINZA [Concomitant]
     Indication: DISABILITY
  4. CARISOPRODOL [Concomitant]
     Indication: DISABILITY
  5. CYMBALTA [Concomitant]
     Indication: DEPRESSION
  6. VICOPROFEN [Concomitant]
     Indication: DISABILITY
  7. ANDROGEL [Suspect]
     Indication: BLOOD TESTOSTERONE DECREASED
     Dosage: 3 PUMPS
     Dates: start: 20101101, end: 20110401
  8. CARISOPRODOL [Concomitant]
     Indication: BONE PAIN
  9. ROZEREM [Concomitant]
     Indication: INSOMNIA
  10. NEXIUM [Concomitant]
     Indication: GASTROOESOPHAGEAL REFLUX DISEASE
  11. MORPHINE [Concomitant]
     Indication: BONE PAIN
  12. AVINZA [Concomitant]
     Indication: BONE PAIN
  13. ALPRAZOLAM [Concomitant]
     Indication: PRODUCT USED FOR UNKNOWN INDICATION
  14. CRESTOR [Concomitant]
     Indication: BLOOD CHOLESTEROL
  15. TAMSULOSIN HCL [Concomitant]
     Indication: PRODUCT USED FOR UNKNOWN INDICATION
  16. VICOPROFEN [Concomitant]
     Indication: BONE PAIN

REACTIONS (1)
  - PROSTATIC SPECIFIC ANTIGEN INCREASED [None]
